APPROVED DRUG PRODUCT: CETIRIZINE HYDROCHLORIDE ALLERGY
Active Ingredient: CETIRIZINE HYDROCHLORIDE
Strength: 10MG
Dosage Form/Route: TABLET;ORAL
Application: A077499 | Product #002
Applicant: SUN PHARMACEUTICAL INDUSTRIES INC
Approved: Dec 27, 2007 | RLD: No | RS: No | Type: DISCN